FAERS Safety Report 5207209-8 (Version None)
Quarter: 2007Q1

REPORT INFORMATION
  Report Type: 
  Country: None (occurrence: None)
  Receive Date: 20070112
  Receipt Date: 20070108
  Transmission Date: 20070707
  Serious: Yes (Hospitalization)
  Sender: FDA-Public Use
  Company Number: FR-GLAXOSMITHKLINE-B0453465A

PATIENT
  Age: 88 Year
  Sex: Female

DRUGS (7)
  1. ZOFRAN [Suspect]
     Indication: VOMITING
     Route: 048
     Dates: start: 20061209, end: 20061221
  2. RIFADIN [Suspect]
     Indication: OSTEOMYELITIS
     Route: 042
     Dates: start: 20061122, end: 20061215
  3. ATHYMIL [Concomitant]
     Indication: DEPRESSION
     Route: 048
     Dates: start: 20061026, end: 20061218
  4. OMEPRAZOLE [Concomitant]
     Route: 048
     Dates: start: 20060930, end: 20061218
  5. VANCOMYCIN [Concomitant]
     Route: 042
     Dates: start: 20061117, end: 20061218
  6. ACETAMINOPHEN [Concomitant]
     Route: 065
  7. LOVENOX [Concomitant]
     Route: 065

REACTIONS (8)
  - ACUTE GENERALISED EXANTHEMATOUS PUSTULOSIS [None]
  - EOSINOPHILIA [None]
  - FACE OEDEMA [None]
  - INFLAMMATION [None]
  - LYMPHOPENIA [None]
  - PYREXIA [None]
  - RASH PUSTULAR [None]
  - SKIN LESION [None]
